FAERS Safety Report 9696683 (Version 2)
Quarter: 2013Q4

REPORT INFORMATION
  Report Type: Spontaneous
  Country: US (occurrence: US)
  Receive Date: 20131119
  Receipt Date: 20131203
  Transmission Date: 20140711
  Serious: Yes (Other)
  Sender: FDA-Public Use
  Company Number: US-GILEAD-2013-0088078

PATIENT
  Sex: Female

DRUGS (3)
  1. LETAIRIS [Suspect]
     Indication: PULMONARY ARTERIAL HYPERTENSION
     Dosage: 10 MG, QD
     Route: 048
     Dates: start: 20120804
  2. COUMADIN                           /00014802/ [Concomitant]
  3. ADCIRCA [Concomitant]

REACTIONS (4)
  - Haemorrhage [Unknown]
  - Osteoarthritis [Unknown]
  - Weight decreased [Unknown]
  - Dry mouth [Unknown]
